FAERS Safety Report 9828368 (Version 2)
Quarter: 2014Q3

REPORT INFORMATION
  Report Type: Spontaneous
  Country: FR (occurrence: FR)
  Receive Date: 20140117
  Receipt Date: 20140722
  Transmission Date: 20150326
  Serious: Yes (Hospitalization)
  Sender: FDA-Public Use
  Company Number: FR-GLAXOSMITHKLINE-B0959645A

PATIENT
  Age: 85 Year
  Sex: Male

DRUGS (13)
  1. DOLIPRANE [Concomitant]
     Active Substance: ACETAMINOPHEN
     Dosage: 500MG THREE TIMES PER DAY
     Route: 048
  2. NUTRITIONAL SUPPLEMENT [Concomitant]
     Active Substance: DIETARY SUPPLEMENT
     Route: 065
  3. KARDEGIC [Concomitant]
     Active Substance: ASPIRIN LYSINE
     Dosage: 75MG PER DAY
     Route: 048
  4. UVEDOSE [Concomitant]
     Active Substance: CHOLECALCIFEROL
     Dosage: 1UNIT MONTHLY
     Route: 048
  5. ADANCOR [Concomitant]
     Active Substance: NICORANDIL
     Dosage: 5MG PER DAY
     Route: 048
  6. IMPORTAL [Concomitant]
     Active Substance: LACTITOL
     Dosage: 10MG PER DAY
     Route: 048
  7. DIALYSIS [Concomitant]
     Active Substance: UNSPECIFIED INGREDIENT
  8. TEMESTA [Concomitant]
     Active Substance: LORAZEPAM
     Dosage: 1MG PER DAY
     Route: 048
  9. ZELITREX [Suspect]
     Active Substance: VALACYCLOVIR HYDROCHLORIDE
     Indication: OPHTHALMIC HERPES ZOSTER
     Dosage: 500MG PER DAY
     Route: 048
     Dates: start: 20131128, end: 20131208
  10. VENOFER [Concomitant]
     Active Substance: IRON SUCROSE
     Route: 042
  11. ELISOR [Concomitant]
     Active Substance: PRAVASTATIN SODIUM
     Dosage: 20MG PER DAY
     Route: 065
  12. MOPRAL [Concomitant]
     Active Substance: OMEPRAZOLE SODIUM
     Dosage: 20MG PER DAY
     Route: 048
  13. LEVOCARNIL [Concomitant]
     Active Substance: LEVOCARNITINE
     Route: 042

REACTIONS (5)
  - General physical health deterioration [Unknown]
  - Agitation [Unknown]
  - Hepatocellular injury [Unknown]
  - Decreased appetite [Unknown]
  - Weight decreased [Unknown]

NARRATIVE: CASE EVENT DATE: 201312
